FAERS Safety Report 25291405 (Version 1)
Quarter: 2025Q2

REPORT INFORMATION
  Report Type: Spontaneous
  Country: US (occurrence: US)
  Receive Date: 20250510
  Receipt Date: 20250510
  Transmission Date: 20250717
  Serious: No
  Sender: SANOFI AVENTIS
  Company Number: US-SA-2025SA119428

PATIENT
  Sex: Female
  Weight: 91.73 kg

DRUGS (3)
  1. DUPIXENT [Suspect]
     Active Substance: DUPILUMAB
     Indication: Dermatitis atopic
     Dosage: 300 MG, QOW
     Route: 058
     Dates: start: 2023
  2. BUPROPION [Concomitant]
     Active Substance: BUPROPION
  3. ACCUTANE [Concomitant]
     Active Substance: ISOTRETINOIN

REACTIONS (4)
  - Eczema [Recovered/Resolved]
  - Skin exfoliation [Recovered/Resolved]
  - Skin discolouration [Recovered/Resolved]
  - Product dose omission issue [Unknown]
